FAERS Safety Report 12848996 (Version 1)
Quarter: 2016Q4

REPORT INFORMATION
  Report Type: Spontaneous
  Country: FR (occurrence: FR)
  Receive Date: 20161014
  Receipt Date: 20161014
  Transmission Date: 20170207
  Serious: Yes (Death, Hospitalization)
  Sender: FDA-Public Use
  Company Number: FR-FRESENIUS KABI-FK201607785

PATIENT
  Age: 69 Year
  Sex: Female
  Weight: 66 kg

DRUGS (2)
  1. PACLITAXEL 6MG/ML CONCENTRATE FOR SOLUTION FOR INFUSION [Suspect]
     Active Substance: PACLITAXEL
     Indication: SQUAMOUS CELL CARCINOMA
     Route: 042
     Dates: start: 20160825, end: 20160825
  2. CARBOPLATIN HOSPIRA [Suspect]
     Active Substance: CARBOPLATIN
     Indication: SQUAMOUS CELL CARCINOMA
     Dates: start: 20160825, end: 20160825

REACTIONS (2)
  - Off label use [Unknown]
  - Febrile neutropenia [Fatal]

NARRATIVE: CASE EVENT DATE: 20160830
